FAERS Safety Report 17184180 (Version 1)
Quarter: 2019Q4

REPORT INFORMATION
  Report Type: Spontaneous
  Country: US (occurrence: US)
  Receive Date: 20191127
  Receipt Date: 20191127
  Transmission Date: 20200122
  Serious: Yes (Hospitalization)
  Sender: FDA-Public Use
  Company Number: None

PATIENT
  Sex: Male
  Weight: 68.5 kg

DRUGS (6)
  1. METHOTREXATE. [Suspect]
     Active Substance: METHOTREXATE
  2. ONCASPAR [Suspect]
     Active Substance: PEGASPARGASE
  3. CYTARABINE. [Suspect]
     Active Substance: CYTARABINE
  4. CYCLOPHOSPHAMIDE. [Suspect]
     Active Substance: CYCLOPHOSPHAMIDE
  5. MERCAPTOPURINE. [Suspect]
     Active Substance: MERCAPTOPURINE
  6. XARELTO [Suspect]
     Active Substance: RIVAROXABAN

REACTIONS (6)
  - Subdural hygroma [None]
  - Subdural haematoma [None]
  - Haematemesis [None]
  - Nausea [None]
  - Headache [None]
  - Thrombocytopenia [None]

NARRATIVE: CASE EVENT DATE: 20190902
